FAERS Safety Report 5464058-3 (Version None)
Quarter: 2007Q3

REPORT INFORMATION
  Report Type: 
  Country: None (occurrence: None)
  Receive Date: 20070921
  Receipt Date: 20070910
  Transmission Date: 20080115
  Serious: Yes (Other)
  Sender: FDA-Public Use
  Company Number: US-JNJFOC-20070902218

PATIENT
  Sex: Female
  Weight: 56.7 kg

DRUGS (9)
  1. DURAGESIC-100 [Suspect]
     Indication: PAIN
     Route: 062
  2. FENTANYL TRANSDERMAL SYSTEM [Suspect]
     Indication: PAIN
     Route: 062
  3. LANTUS [Concomitant]
     Indication: DIABETES MELLITUS
     Route: 058
  4. ACTOS [Concomitant]
     Indication: DIABETES MELLITUS
     Route: 048
  5. NORCO [Concomitant]
     Indication: BREAKTHROUGH PAIN
     Dosage: 10/325, ONE TO TWO EVERY 6 TO 8 HOURS
     Route: 048
  6. CYMBALTA [Concomitant]
     Indication: ANTIDEPRESSANT THERAPY
     Route: 048
  7. CYMBALTA [Concomitant]
     Indication: PAIN
     Route: 048
  8. NEXIUM [Concomitant]
     Indication: GASTROOESOPHAGEAL REFLUX DISEASE
     Route: 048
  9. NEXIUM [Concomitant]
     Indication: DYSPEPSIA
     Route: 048

REACTIONS (7)
  - DIZZINESS [None]
  - DRUG EFFECT DECREASED [None]
  - FATIGUE [None]
  - HYPERTENSION [None]
  - NEUROPATHY [None]
  - OVERDOSE [None]
  - PAIN [None]
